FAERS Safety Report 4455755-7 (Version None)
Quarter: 2004Q3

REPORT INFORMATION
  Report Type: 
  Country: None (occurrence: None)
  Receive Date: 20040920
  Receipt Date: 20040914
  Transmission Date: 20050211
  Serious: Yes (Death)
  Sender: FDA-Public Use
  Company Number: KII-2001-0006451

PATIENT
  Sex: Male

DRUGS (2)
  1. MORPHINE SULFATE [Suspect]
     Dosage: 25 MG/HR, SEE TEXT, INTRAVENOUS
     Route: 042
  2. OXYCONTIN [Suspect]
     Dosage: 900 MG

REACTIONS (1)
  - DEATH [None]
